FAERS Safety Report 10029372 (Version 1)
Quarter: 2014Q1

REPORT INFORMATION
  Report Type: Spontaneous
  Country: NL (occurrence: NL)
  Receive Date: 20140322
  Receipt Date: 20140322
  Transmission Date: 20141002
  Serious: Yes (Other)
  Sender: FDA-Public Use
  Company Number: PHHY2014NL033678

PATIENT
  Age: 47 Year
  Sex: Male

DRUGS (5)
  1. CLOZAPINE [Suspect]
     Indication: SCHIZOPHRENIA
     Dosage: 25 MG, PER DAY
  2. CLOZAPINE [Suspect]
     Dosage: 150 MG, PER DAY
  3. CLOZAPINE [Suspect]
     Dosage: 250 MG, PER DAY
  4. OLANZAPINE [Suspect]
     Indication: SCHIZOPHRENIA
  5. ZUCLOPENTHIXOL [Suspect]
     Indication: SCHIZOPHRENIA

REACTIONS (4)
  - Hypokalaemia [Recovered/Resolved]
  - Hypertension [Recovered/Resolved]
  - Condition aggravated [Unknown]
  - Tachycardia [Recovered/Resolved]
